FAERS Safety Report 8048449-2 (Version None)
Quarter: 2012Q1

REPORT INFORMATION
  Report Type: 
  Country: None (occurrence: None)
  Receive Date: 20120117
  Receipt Date: 20120110
  Transmission Date: 20120608
  Serious: No
  Sender: FDA-Public Use
  Company Number: US-PFIZER INC-2012008732

PATIENT
  Sex: Female
  Weight: 123 kg

DRUGS (13)
  1. TERAZOSIN HYDROCHLORIDE [Concomitant]
     Indication: HYPERTENSION
     Dosage: 5 MG, DAILY
  2. TERAZOSIN HYDROCHLORIDE [Concomitant]
     Indication: FLUID RETENTION
  3. TEKTURNA HCT [Concomitant]
     Indication: HYPERTENSION
     Dosage: 150/12.5 MG  DAILY
     Dates: end: 20111201
  4. LYRICA [Suspect]
     Indication: KNEE ARTHROPLASTY
     Dosage: 75 MG, 2X/DAY
     Dates: start: 20090101
  5. TRIAMTERENE AND HYDROCHLOROTHIAZIDE [Concomitant]
     Indication: FLUID RETENTION
  6. CLONIDINE [Concomitant]
     Indication: FLUID RETENTION
  7. ALENDRONATE SODIUM [Concomitant]
     Indication: SUPPLEMENTATION THERAPY
     Dosage: 35 MG, WEEKLY
  8. TEKTURNA HCT [Concomitant]
     Indication: FLUID RETENTION
  9. LEVOTHYROXINE SODIUM [Concomitant]
     Indication: THYROID DISORDER
     Dosage: 0.05 MG,DAILY
  10. DIOVAN [Concomitant]
     Indication: HYPERTENSION
     Dosage: 320 MG, DAILY
  11. TRIAMTERENE AND HYDROCHLOROTHIAZIDE [Concomitant]
     Indication: HYPERTENSION
     Dosage: 37.5/25 MG,  DAILY
  12. CLONIDINE [Concomitant]
     Indication: HYPERTENSION
     Dosage: 1 MG, 3X/DAY
  13. DIOVAN [Concomitant]
     Indication: FLUID RETENTION

REACTIONS (1)
  - BURNING SENSATION [None]
